FAERS Safety Report 14700390 (Version 1)
Quarter: 2018Q1

REPORT INFORMATION
  Report Type: Report from Study
  Country: US (occurrence: US)
  Receive Date: 20180330
  Receipt Date: 20180330
  Transmission Date: 20180509
  Serious: Yes (Hospitalization, Other)
  Sender: FDA-Public Use
  Company Number: US-GILEAD-2018-0329515

PATIENT
  Age: 55 Year
  Sex: Female

DRUGS (1)
  1. RANOLAZINE. [Suspect]
     Active Substance: RANOLAZINE
     Indication: ANGINA PECTORIS
     Dosage: 1000 MG, QD
     Route: 048
     Dates: start: 2010

REACTIONS (8)
  - Stent placement [Unknown]
  - Gastric disorder [Not Recovered/Not Resolved]
  - Cardiac operation [Recovering/Resolving]
  - Surgery [Unknown]
  - Off label use [Not Recovered/Not Resolved]
  - Fall [Recovered/Resolved with Sequelae]
  - Rotator cuff syndrome [Recovering/Resolving]
  - Fall [Recovered/Resolved with Sequelae]

NARRATIVE: CASE EVENT DATE: 2010
